FAERS Safety Report 18306914 (Version 1)
Quarter: 2020Q3

REPORT INFORMATION
  Report Type: Spontaneous
  Country: CA (occurrence: CA)
  Receive Date: 20200924
  Receipt Date: 20200924
  Transmission Date: 20201103
  Serious: Yes (Hospitalization, Other)
  Sender: FDA-Public Use
  Company Number: CA-ACCORD-202097

PATIENT
  Age: 77 Year
  Sex: Female

DRUGS (44)
  1. ACEBUTOLOL [Suspect]
     Active Substance: ACEBUTOLOL
     Indication: PRODUCT USED FOR UNKNOWN INDICATION
  2. APO?FUROSEMIDE [Suspect]
     Active Substance: FUROSEMIDE
     Indication: OEDEMA
     Dosage: FREQUENCY:  EVERY 1 DAYS
  3. BISACODYL. [Suspect]
     Active Substance: BISACODYL
     Indication: CONSTIPATION
     Dosage: FREQUENCY: 1 EVERY 1 DAYS
  4. VACCINIUM MACROCARPON [Concomitant]
     Active Substance: CRANBERRY
  5. DILTIAZEM. [Suspect]
     Active Substance: DILTIAZEM
     Indication: HYPERTENSION
     Dosage: FREQUENCY: 1 EVERY 1 DAYS
  6. APO?DILTIAZ [Suspect]
     Active Substance: DILTIAZEM HYDROCHLORIDE
     Indication: PRODUCT USED FOR UNKNOWN INDICATION
  7. CARBAMAZEPINE. [Suspect]
     Active Substance: CARBAMAZEPINE
     Indication: PRODUCT USED FOR UNKNOWN INDICATION
  8. QUINAPRIL. [Suspect]
     Active Substance: QUINAPRIL
     Indication: CORONARY ARTERY DISEASE
     Dosage: FREQUENCY: EVERY 1 DAYS
  9. SALBUTAMOL [Suspect]
     Active Substance: ALBUTEROL
     Indication: PRODUCT USED FOR UNKNOWN INDICATION
  10. ACETYLSALICYLIC ACID [Concomitant]
     Active Substance: ASPIRIN
  11. ACETYLSALICYLIC ACID [Concomitant]
     Active Substance: ASPIRIN
  12. DILTIAZEM. [Suspect]
     Active Substance: DILTIAZEM
     Indication: HYPERTENSION
     Dosage: FREQUENCY: 1 EVERY 1 DAYS
  13. FUROSEMIDE. [Suspect]
     Active Substance: FUROSEMIDE
     Indication: PRODUCT USED FOR UNKNOWN INDICATION
  14. OMEPRAZOLE. [Suspect]
     Active Substance: OMEPRAZOLE
     Indication: DUODENAL ULCER
     Dosage: FREQUENCY: AS REQUIRED
  15. DILTIAZEM. [Suspect]
     Active Substance: DILTIAZEM
     Indication: HYPERTENSION
  16. GLUCOSAMINE [Suspect]
     Active Substance: GLUCOSAMINE
     Indication: PRODUCT USED FOR UNKNOWN INDICATION
  17. LEVOFLOXACIN. [Suspect]
     Active Substance: LEVOFLOXACIN
     Indication: PRODUCT USED FOR UNKNOWN INDICATION
  18. LEVOTHYROXINE. [Suspect]
     Active Substance: LEVOTHYROXINE
     Indication: PRODUCT USED FOR UNKNOWN INDICATION
  19. CAFFEINE/PARACETAMOL [Suspect]
     Active Substance: ACETAMINOPHEN\CAFFEINE
     Indication: PRODUCT USED FOR UNKNOWN INDICATION
  20. SPIRIVA [Suspect]
     Active Substance: TIOTROPIUM BROMIDE MONOHYDRATE
     Indication: PRODUCT USED FOR UNKNOWN INDICATION
  21. MORPHINE [Suspect]
     Active Substance: MORPHINE
     Indication: PAIN
     Dosage: FREQUENCY: 1 EVERY 1 DAYS
  22. AMITRIPTYLINE [Suspect]
     Active Substance: AMITRIPTYLINE
     Indication: PRODUCT USED FOR UNKNOWN INDICATION
  23. ROSUVASTATIN. [Suspect]
     Active Substance: ROSUVASTATIN
     Indication: PRODUCT USED FOR UNKNOWN INDICATION
  24. APO?CYCLOBENZAPRINE [Suspect]
     Active Substance: CYCLOBENZAPRINE
     Indication: PRODUCT USED FOR UNKNOWN INDICATION
  25. PHOSPHORIC ACID/PHOSPHORIC ACID SODIUM [Concomitant]
  26. MAGNESIUM HYDROXIDE. [Suspect]
     Active Substance: MAGNESIUM HYDROXIDE
     Indication: PRODUCT USED FOR UNKNOWN INDICATION
  27. OXAZEPAM. [Suspect]
     Active Substance: OXAZEPAM
     Indication: PRODUCT USED FOR UNKNOWN INDICATION
  28. PERSANTIN [Suspect]
     Active Substance: DIPYRIDAMOLE
     Indication: CEREBROVASCULAR ACCIDENT
     Dosage: FREQUENCY: 2 EVERY 1 DAYS
  29. DILTIAZEM. [Suspect]
     Active Substance: DILTIAZEM
     Indication: HYPERTENSION
  30. AMLODIPINE [Suspect]
     Active Substance: AMLODIPINE BESYLATE
     Indication: PRODUCT USED FOR UNKNOWN INDICATION
  31. APO?CARBAMAZEPINE [Suspect]
     Active Substance: CARBAMAZEPINE
     Indication: PRODUCT USED FOR UNKNOWN INDICATION
  32. APO?OXAZEPAM [Suspect]
     Active Substance: OXAZEPAM
     Indication: PRODUCT USED FOR UNKNOWN INDICATION
  33. MORPHINE [Suspect]
     Active Substance: MORPHINE
     Indication: PAIN
  34. MORPHINE [Suspect]
     Active Substance: MORPHINE
     Indication: PAIN
  35. CYCLOBENZAPRINE. [Suspect]
     Active Substance: CYCLOBENZAPRINE
     Indication: PRODUCT USED FOR UNKNOWN INDICATION
  36. GALANTAMINE/GALANTAMINE HYDROBROMIDE [Suspect]
     Active Substance: GALANTAMINE\GALANTAMINE HYDROBROMIDE
     Indication: PRODUCT USED FOR UNKNOWN INDICATION
  37. MORPHINE [Suspect]
     Active Substance: MORPHINE
     Indication: PAIN
     Dosage: FREQUENCY: 2 EVERY 1 DAYS
  38. NITROGLYCERIN. [Suspect]
     Active Substance: NITROGLYCERIN
     Indication: PRODUCT USED FOR UNKNOWN INDICATION
  39. GLYCEROL [Concomitant]
     Active Substance: GLYCERIN
  40. DIPYRIDAMOLE. [Concomitant]
     Active Substance: DIPYRIDAMOLE
  41. APO?AMITRIPTYLINE [Suspect]
     Active Substance: AMITRIPTYLINE HYDROCHLORIDE
     Indication: PRODUCT USED FOR UNKNOWN INDICATION
  42. LACTULOSE. [Suspect]
     Active Substance: LACTULOSE
     Indication: PRODUCT USED FOR UNKNOWN INDICATION
  43. POTASSIUM [Concomitant]
     Active Substance: POTASSIUM
  44. ASCORBIC ACID. [Concomitant]
     Active Substance: ASCORBIC ACID

REACTIONS (13)
  - Sedation complication [Recovered/Resolved]
  - Balance disorder [Recovered/Resolved]
  - Depressed level of consciousness [Recovered/Resolved]
  - Pain [Recovered/Resolved]
  - Fall [Unknown]
  - Mobility decreased [Recovered/Resolved]
  - Sedation [Recovered/Resolved]
  - Blood calcium decreased [Recovered/Resolved]
  - Creatinine renal clearance decreased [Recovered/Resolved]
  - Hypotension [Recovered/Resolved]
  - Cognitive disorder [Recovered/Resolved]
  - Constipation [Recovered/Resolved]
  - Orthostatic hypotension [Recovered/Resolved]
